FAERS Safety Report 19673846 (Version 1)
Quarter: 2021Q3

REPORT INFORMATION
  Report Type: Spontaneous
  Country: US (occurrence: US)
  Receive Date: 20210809
  Receipt Date: 20210809
  Transmission Date: 20211014
  Serious: Yes (Other)
  Sender: FDA-Public Use
  Company Number: US-ACCORD-176430

PATIENT
  Age: 63 Year
  Sex: Female
  Weight: 71.67 kg

DRUGS (8)
  1. CYTOXAN [Suspect]
     Active Substance: CYCLOPHOSPHAMIDE
     Indication: BREAST CANCER
     Dosage: NUMBER OF CYCLES: 06
     Dates: start: 20140319, end: 20140702
  2. DOCETAXEL ACCORD [Suspect]
     Active Substance: DOCETAXEL
     Indication: BREAST CANCER
     Dates: start: 20140319, end: 20140702
  3. VITAMINS NOS [Concomitant]
     Active Substance: VITAMINS
     Dates: start: 2010
  4. ANASTROZOLE. [Concomitant]
     Active Substance: ANASTROZOLE
     Dates: start: 2010
  5. LOSARTAN. [Concomitant]
     Active Substance: LOSARTAN
     Dates: start: 2010
  6. IRON [Concomitant]
     Active Substance: IRON
     Dates: start: 2010
  7. ROSUVASTATIN. [Concomitant]
     Active Substance: ROSUVASTATIN
     Dates: start: 2010
  8. ACICLOVIR [Concomitant]
     Active Substance: ACYCLOVIR
     Dates: start: 2010

REACTIONS (1)
  - Alopecia [Not Recovered/Not Resolved]

NARRATIVE: CASE EVENT DATE: 201501
